FAERS Safety Report 9383670 (Version 1)
Quarter: 2013Q3

REPORT INFORMATION
  Report Type: Spontaneous
  Country: JP (occurrence: JP)
  Receive Date: 20130704
  Receipt Date: 20130704
  Transmission Date: 20140515
  Serious: Yes (Hospitalization)
  Sender: FDA-Public Use
  Company Number: JP-BAYER-2013-070243

PATIENT
  Age: 7 Year
  Sex: Male
  Weight: 22 kg

DRUGS (5)
  1. BAYASPIRIN [Suspect]
     Indication: HYPOPLASTIC LEFT HEART SYNDROME
     Dosage: 25 MG, BID
     Route: 048
     Dates: start: 200307, end: 20100929
  2. BAYASPIRIN [Suspect]
     Indication: HYPOPLASTIC LEFT HEART SYNDROME
     Dosage: DAILY DOSE 50 MG
     Route: 048
     Dates: start: 20101007
  3. WARFARIN POTASSIUM [Suspect]
     Indication: HYPOPLASTIC LEFT HEART SYNDROME
     Dosage: DAILY DOSE 1.4 DF
     Route: 048
     Dates: start: 200307, end: 20100929
  4. WARFARIN POTASSIUM [Suspect]
     Indication: HYPOPLASTIC LEFT HEART SYNDROME
     Dosage: DAILY DOSE 1.4 DF
     Route: 048
     Dates: start: 20101007
  5. SELENICA-R [Concomitant]
     Indication: EPILEPSY
     Dosage: DAILY DOSE 300 MG
     Route: 048
     Dates: start: 200802

REACTIONS (4)
  - Subgaleal haematoma [Recovered/Resolved]
  - Labelled drug-drug interaction medication error [None]
  - Anaemia [Recovering/Resolving]
  - Headache [Recovering/Resolving]
